FAERS Safety Report 8216752-9 (Version None)
Quarter: 2012Q1

REPORT INFORMATION
  Report Type: 
  Country: None (occurrence: None)
  Receive Date: 20120316
  Receipt Date: 20120314
  Transmission Date: 20120608
  Serious: Yes (Hospitalization)
  Sender: FDA-Public Use
  Company Number: PL-ROCHE-1047446

PATIENT
  Age: 44 Year
  Sex: Male
  Weight: 91.1 kg

DRUGS (4)
  1. HYDROCORTISONE [Concomitant]
     Dosage: 1 %
  2. BORIC ACID [Concomitant]
     Dates: start: 20120117
  3. ZYRTEC [Concomitant]
     Dates: start: 20120117
  4. VEMURAFENIB [Suspect]
     Indication: MALIGNANT MELANOMA
     Dosage: LAST DOSE WAS ADMINISTERED ON 10/FEB/2012 PRIOR TO SAE
     Route: 048
     Dates: start: 20120110

REACTIONS (1)
  - DIPLOPIA [None]
